FAERS Safety Report 21213569 (Version 2)
Quarter: 2022Q3

REPORT INFORMATION
  Report Type: Spontaneous
  Country: GB (occurrence: GB)
  Receive Date: 20220815
  Receipt Date: 20220819
  Transmission Date: 20221027
  Serious: Yes (Other)
  Sender: FDA-Public Use
  Company Number: GB-CELLTRION INC.-2022GB012855

PATIENT

DRUGS (1)
  1. INFLIXIMAB [Suspect]
     Active Substance: INFLIXIMAB
     Indication: Product used for unknown indication
     Dosage: 120 MG, EVERY 2 WEEKS
     Dates: start: 20220805

REACTIONS (5)
  - Ankle operation [Unknown]
  - Tendon operation [Unknown]
  - Condition aggravated [Unknown]
  - Vomiting [Unknown]
  - Mobility decreased [Unknown]

NARRATIVE: CASE EVENT DATE: 20220805
